FAERS Safety Report 7883306-3 (Version None)
Quarter: 2011Q4

REPORT INFORMATION
  Report Type: 
  Country: None (occurrence: None)
  Receive Date: 20111102
  Receipt Date: 20111026
  Transmission Date: 20120403
  Serious: Yes (Other)
  Sender: FDA-Public Use
  Company Number: PHEH2008US08371

PATIENT
  Sex: Male

DRUGS (33)
  1. GABAPENTIN [Concomitant]
  2. ERYTHROMYCIN [Concomitant]
  3. PLAVIX [Concomitant]
     Dosage: 75 MG, QD
  4. METOPROLOL SUCCINATE [Concomitant]
     Dosage: 50 MG, BID
  5. ASPIRIN [Concomitant]
     Dosage: 81 MG, QD
  6. PRILOSEC [Concomitant]
     Dosage: 20 MG, BID
  7. AREDIA [Suspect]
  8. FENTANYL [Concomitant]
     Dosage: 125 UG, UNK
     Route: 042
  9. OXYCODONE HCL [Concomitant]
     Dosage: 40 MG, TID
  10. PROTONIX [Concomitant]
  11. LORTAB [Concomitant]
  12. ZOMETA [Suspect]
     Indication: MULTIPLE MYELOMA
     Route: 042
  13. NEURONTIN [Concomitant]
     Dosage: 300 MG, QHS
  14. ASPIRIN [Concomitant]
  15. MELPHALAN HYDROCHLORIDE [Concomitant]
  16. DEXAMETHASONE [Concomitant]
  17. COUMADIN [Concomitant]
  18. REVLIMID [Concomitant]
  19. PERCOCET [Concomitant]
  20. VIDAZA [Concomitant]
  21. SIMVASTATIN [Concomitant]
     Dosage: 40 MG, QHS
  22. FAMOTIDINE [Concomitant]
  23. CHLORHEXIDINE GLUCONATE [Concomitant]
  24. ZOFRAN [Concomitant]
  25. VIOXX [Concomitant]
  26. NEUPOGEN [Concomitant]
  27. ADRIAMYCIN PFS [Concomitant]
  28. PERIDEX [Concomitant]
  29. NEXIUM [Concomitant]
  30. LISINOPRIL [Concomitant]
  31. OXYCONTIN [Concomitant]
  32. EMLA [Concomitant]
  33. VINCRISTINE [Concomitant]

REACTIONS (93)
  - DYSPEPSIA [None]
  - ORAL CANDIDIASIS [None]
  - METASTASES TO BONE [None]
  - ATELECTASIS [None]
  - HYDROCELE [None]
  - EYELID OEDEMA [None]
  - NEUROPATHY PERIPHERAL [None]
  - CORONARY ARTERY DISEASE [None]
  - CARDIOMEGALY [None]
  - PNEUMONIA [None]
  - PLEURAL EFFUSION [None]
  - ELECTROCARDIOGRAM ST SEGMENT DEPRESSION [None]
  - CARDIAC FAILURE CONGESTIVE [None]
  - HIATUS HERNIA [None]
  - CONSTIPATION [None]
  - MYOCARDIAL INFARCTION [None]
  - RESPIRATORY DISTRESS [None]
  - BONE LESION [None]
  - HAEMATOCRIT DECREASED [None]
  - AMNESIA [None]
  - OSTEOMYELITIS [None]
  - TYPE 2 DIABETES MELLITUS [None]
  - FEMUR FRACTURE [None]
  - NERVOUS SYSTEM DISORDER [None]
  - NAUSEA [None]
  - BENCE JONES PROTEIN URINE PRESENT [None]
  - LIVER FUNCTION TEST ABNORMAL [None]
  - DYSPNOEA [None]
  - SMALL INTESTINAL OBSTRUCTION [None]
  - PULMONARY OEDEMA [None]
  - CHEST PAIN [None]
  - MUSCULOSKELETAL PAIN [None]
  - EJECTION FRACTION DECREASED [None]
  - HYPOTENSION [None]
  - GASTROOESOPHAGEAL REFLUX DISEASE [None]
  - METAPLASIA [None]
  - POLYDIPSIA [None]
  - ACUTE MYELOID LEUKAEMIA [None]
  - NEUTROPENIA [None]
  - PETECHIAE [None]
  - ELECTROCARDIOGRAM ST SEGMENT ELEVATION [None]
  - GASTRIC ULCER [None]
  - HYPOXIC-ISCHAEMIC ENCEPHALOPATHY [None]
  - PULPITIS DENTAL [None]
  - TRICUSPID VALVE INCOMPETENCE [None]
  - OSTEONECROSIS OF JAW [None]
  - INFECTION [None]
  - SENSORY LOSS [None]
  - WEIGHT DECREASED [None]
  - BARRETT'S OESOPHAGUS [None]
  - LOOSE TOOTH [None]
  - HAEMORRHOIDS [None]
  - ABDOMINAL DISTENSION [None]
  - IMPAIRED HEALING [None]
  - MYELODYSPLASTIC SYNDROME [None]
  - DYSPHAGIA [None]
  - GASTROINTESTINAL HAEMORRHAGE [None]
  - FALL [None]
  - ACETABULUM FRACTURE [None]
  - MUSCLE ATROPHY [None]
  - VOMITING [None]
  - PANCYTOPENIA [None]
  - ERYTHEMA OF EYELID [None]
  - LUNG INFILTRATION [None]
  - GINGIVAL BLEEDING [None]
  - ISCHAEMIC CARDIOMYOPATHY [None]
  - DUODENITIS [None]
  - ARTHRALGIA [None]
  - PAIN [None]
  - OSTEOARTHRITIS [None]
  - PAIN IN JAW [None]
  - PERONEAL NERVE PALSY [None]
  - ARTHRITIS [None]
  - POLYURIA [None]
  - HYPOAESTHESIA [None]
  - ARTERIOSCLEROSIS CORONARY ARTERY [None]
  - ANAEMIA [None]
  - THROMBOCYTOPENIA [None]
  - EXPOSED BONE IN JAW [None]
  - CARDIAC ARREST [None]
  - DRUG HYPERSENSITIVITY [None]
  - CELLULITIS [None]
  - PERIODONTITIS [None]
  - NEOPLASM MALIGNANT [None]
  - GASTRITIS [None]
  - OESOPHAGITIS [None]
  - ABDOMINAL PAIN [None]
  - ASCITES [None]
  - LYMPHOEDEMA [None]
  - RIB FRACTURE [None]
  - VENTRICULAR FIBRILLATION [None]
  - JOINT SWELLING [None]
  - ANGINA UNSTABLE [None]
